FAERS Safety Report 8678198 (Version 4)
Quarter: 2012Q4

REPORT INFORMATION
  Report Type: 
  Country: GB (occurrence: GB)
  Receive Date: 20120723
  Receipt Date: 20120831
  Transmission Date: 20130627
  Serious: Yes (Hospitalization, Other)
  Sender: FDA-Public Use
  Company Number: GB-PFIZER INC-2012171775

PATIENT
  Age: 40 Year
  Sex: Male
  Weight: 92 kg

DRUGS (4)
  1. IBUPROFEN [Suspect]
     Indication: GASTRIC DISORDER
     Dosage: 200 mg, BID
     Dates: start: 20120609, end: 20120609
  2. ALKA-SELTZER DAY COLD [Suspect]
     Indication: ABDOMINAL DISCOMFORT
     Dosage: 2 DF, ONCE
     Dates: start: 20120609, end: 20120609
  3. OMEPRAZOLE [Concomitant]
     Indication: ABDOMINAL DISCOMFORT
     Dosage: UNK
  4. OMEPRAZOLE [Concomitant]
     Indication: DYSPEPSIA

REACTIONS (11)
  - Quadriplegia [Recovered/Resolved]
  - Paraesthesia [Recovered/Resolved]
  - Hypoaesthesia [Recovered/Resolved]
  - Mobility decreased [Recovered/Resolved]
  - VIIth nerve paralysis [Recovered/Resolved]
  - Dizziness [Recovered/Resolved]
  - Malaise [Recovered/Resolved]
  - Abdominal discomfort [Recovered/Resolved]
  - Asthenia [Not Recovered/Not Resolved]
  - Hyperventilation [Recovered/Resolved]
  - Hypoaesthesia [Recovered/Resolved]
